FAERS Safety Report 8033652-8 (Version None)
Quarter: 2012Q1

REPORT INFORMATION
  Report Type: 
  Country: None (occurrence: None)
  Receive Date: 20120110
  Receipt Date: 20111227
  Transmission Date: 20120608
  Serious: Yes (Hospitalization)
  Sender: FDA-Public Use
  Company Number: ES-CELGENEUS-144-50794-11123414

PATIENT
  Age: 74 Year
  Sex: Male

DRUGS (4)
  1. RED BLOOD CELLS [Concomitant]
     Route: 041
     Dates: start: 20110501, end: 20111101
  2. VIDAZA [Suspect]
     Route: 065
     Dates: start: 20110207, end: 20111101
  3. NEULASTA [Concomitant]
     Route: 065
     Dates: start: 20110201, end: 20111101
  4. PLATELETS [Concomitant]
     Route: 041
     Dates: start: 20110401, end: 20111101

REACTIONS (2)
  - INFECTION [None]
  - TOXICITY TO VARIOUS AGENTS [None]
